FAERS Safety Report 10053209 (Version 1)
Quarter: 2014Q2

REPORT INFORMATION
  Report Type: Spontaneous
  Country: US (occurrence: US)
  Receive Date: 20140402
  Receipt Date: 20140402
  Transmission Date: 20141212
  Serious: Yes (Death)
  Sender: FDA-Public Use
  Company Number: US-GLAXOSMITHKLINE-A1067570A

PATIENT
  Age: 68 Year
  Sex: Female

DRUGS (9)
  1. VOTRIENT [Suspect]
     Indication: ILL-DEFINED DISORDER
     Dosage: 800MG PER DAY
     Route: 048
     Dates: start: 20131218
  2. ZIAC [Concomitant]
  3. MULTIVITAMIN [Concomitant]
  4. STOOL SOFTENER [Concomitant]
  5. LISINOPRIL [Concomitant]
  6. GABAPENTIN [Concomitant]
  7. ATORVASTATIN [Concomitant]
  8. ASPIRIN [Concomitant]
  9. OXYCONTIN [Concomitant]

REACTIONS (1)
  - Death [Fatal]
